FAERS Safety Report 13214176 (Version 1)
Quarter: 2017Q1

REPORT INFORMATION
  Report Type: Spontaneous
  Country: US (occurrence: US)
  Receive Date: 20170209
  Receipt Date: 20170209
  Transmission Date: 20170428
  Serious: No
  Sender: FDA-Public Use
  Company Number: US-ALLERGAN-1668504US

PATIENT
  Age: 56 Year
  Sex: Female

DRUGS (5)
  1. BOTOX COSMETIC [Suspect]
     Active Substance: ONABOTULINUMTOXINA
     Dosage: 22 UNITS, UNK
     Route: 030
     Dates: start: 20160908, end: 20160908
  2. BOTOX COSMETIC [Suspect]
     Active Substance: ONABOTULINUMTOXINA
     Indication: SKIN WRINKLING
     Dosage: 20 UNITS, UNK
     Route: 030
     Dates: start: 20160817, end: 20160817
  3. BOTOX COSMETIC [Suspect]
     Active Substance: ONABOTULINUMTOXINA
     Indication: SKIN WRINKLING
     Dosage: 6 UNITS, UNK
     Route: 030
     Dates: start: 20160817, end: 20160817
  4. BOTOX COSMETIC [Suspect]
     Active Substance: ONABOTULINUMTOXINA
     Dosage: 6 UNITS, UNK
     Route: 030
     Dates: start: 20160817, end: 20160817
  5. BOTOX COSMETIC [Suspect]
     Active Substance: ONABOTULINUMTOXINA
     Indication: SKIN WRINKLING
     Dosage: 12 UNITS, UNK
     Route: 030
     Dates: start: 20160817, end: 20160817

REACTIONS (3)
  - Poor quality drug administered [Unknown]
  - Product use issue [Unknown]
  - Drug ineffective [Unknown]
